FAERS Safety Report 19981170 (Version 2)
Quarter: 2021Q4

REPORT INFORMATION
  Report Type: Spontaneous
  Country: IE (occurrence: IE)
  Receive Date: 20211021
  Receipt Date: 20211124
  Transmission Date: 20220303
  Serious: Yes (Other)
  Sender: FDA-Public Use
  Company Number: IE-PFIZER INC-202101377910

PATIENT
  Sex: Female
  Weight: 30 kg

DRUGS (2)
  1. GABAPENTIN [Suspect]
     Active Substance: GABAPENTIN
     Dosage: UNK
  2. MELATONIN [Suspect]
     Active Substance: MELATONIN
     Dosage: UNK

REACTIONS (1)
  - Juvenile idiopathic arthritis [Unknown]
